FAERS Safety Report 6400398-9 (Version None)
Quarter: 2009Q4

REPORT INFORMATION
  Report Type: 
  Country: None (occurrence: None)
  Receive Date: 20091014
  Receipt Date: 20091012
  Transmission Date: 20100525
  Serious: Yes (Life-Threatening)
  Sender: FDA-Public Use
  Company Number: TN-ROXANE LABORATORIES, INC.-2009-RO-01060RO

PATIENT
  Age: 24 Year
  Sex: Female

DRUGS (2)
  1. FUROSEMIDE [Suspect]
     Indication: LUPUS NEPHRITIS
     Dosage: 20 MG
  2. PREDNISONE TAB [Suspect]
     Indication: LUPUS NEPHRITIS

REACTIONS (1)
  - TOXIC EPIDERMAL NECROLYSIS [None]
